FAERS Safety Report 6240165-2 (Version None)
Quarter: 2009Q2

REPORT INFORMATION
  Report Type: 
  Country: None (occurrence: None)
  Receive Date: 20090619
  Receipt Date: 20090609
  Transmission Date: 20091009
  Serious: Yes (Hospitalization)
  Sender: FDA-Public Use
  Company Number: FABR-100817

PATIENT
  Age: 48 Year
  Sex: Male
  Weight: 55 kg

DRUGS (1)
  1. FABRAZYME [Suspect]
     Indication: FABRY'S DISEASE
     Dosage: 1 MG, Q2W, INTRAVENOUS
     Route: 042
     Dates: start: 20060701, end: 20090401

REACTIONS (3)
  - DIVERTICULAR PERFORATION [None]
  - GLOMERULONEPHRITIS [None]
  - INTESTINAL PERFORATION [None]
